FAERS Safety Report 6230204-7 (Version None)
Quarter: 2009Q2

REPORT INFORMATION
  Report Type: 
  Country: None (occurrence: None)
  Receive Date: 20090615
  Receipt Date: 20090609
  Transmission Date: 20091009
  Serious: Yes (Hospitalization)
  Sender: FDA-Public Use
  Company Number: JP-ABBOTT-09P-087-0576022-00

PATIENT
  Age: 79 Year
  Sex: Male

DRUGS (4)
  1. KLARICID [Suspect]
     Indication: BRONCHITIS
     Route: 048
     Dates: start: 20080229
  2. KLARICID [Suspect]
     Indication: ALLERGY TEST POSITIVE
     Route: 048
     Dates: start: 20080721, end: 20080721
  3. THEOPHYLLINE [Concomitant]
     Indication: BRONCHITIS
     Route: 048
     Dates: start: 20080229
  4. L-CARBOCYSTINE [Concomitant]
     Indication: BRONCHITIS
     Route: 048
     Dates: start: 20080229

REACTIONS (1)
  - LEUKOCYTOCLASTIC VASCULITIS [None]
